FAERS Safety Report 15882123 (Version 1)
Quarter: 2019Q1

REPORT INFORMATION
  Report Type: Spontaneous
  Country: US (occurrence: US)
  Receive Date: 20190128
  Receipt Date: 20190128
  Transmission Date: 20190417
  Serious: Yes (Other)
  Sender: FDA-Public Use
  Company Number: US-BRAINTREE LABORATORIES-190038

PATIENT
  Age: 71 Year
  Sex: Female
  Weight: 62.14 kg

DRUGS (1)
  1. SUPREP BOWEL PREP [Suspect]
     Active Substance: MAGNESIUM SULFATE\POTASSIUM SULFATE\SODIUM SULFATE
     Indication: COLONOSCOPY
     Dosage: 2 X 6 OZ. BOTTLE
     Route: 048
     Dates: start: 20180828, end: 20180829

REACTIONS (8)
  - Retching [None]
  - Chills [None]
  - Tremor [None]
  - Malaise [None]
  - Dehydration [None]
  - Vomiting [None]
  - Headache [None]
  - Nausea [None]

NARRATIVE: CASE EVENT DATE: 20180828
